FAERS Safety Report 15124720 (Version 2)
Quarter: 2019Q1

REPORT INFORMATION
  Report Type: Spontaneous
  Country: JP (occurrence: JP)
  Receive Date: 20180710
  Receipt Date: 20190213
  Transmission Date: 20190417
  Serious: Yes (Other)
  Sender: FDA-Public Use
  Company Number: JP-CONCORDIA PHARMACEUTICALS INC.-E2B_00013373

PATIENT
  Age: 73 Year
  Sex: Male

DRUGS (7)
  1. PREDNISOLONE. [Suspect]
     Active Substance: PREDNISOLONE
     Dosage: TAPERED BY 5 MG/DAY EVERY 2 WEEKS
  2. PREDNISOLONE. [Suspect]
     Active Substance: PREDNISOLONE
     Indication: AUTOIMMUNE PANCREATITIS
     Dosage: 0.6 MG/KG
  3. PREDNISOLONE. [Suspect]
     Active Substance: PREDNISOLONE
  4. PREDNISOLONE. [Suspect]
     Active Substance: PREDNISOLONE
     Dosage: TAPERED OVER 12 WEEKS
  5. PREDNISOLONE. [Suspect]
     Active Substance: PREDNISOLONE
  6. INSULIN [Concomitant]
     Active Substance: INSULIN NOS
     Dosage: 21 UNITS (DECREASED)
  7. INSULIN [Concomitant]
     Active Substance: INSULIN NOS
     Indication: TYPE 2 DIABETES MELLITUS
     Dosage: 32 UNITS

REACTIONS (2)
  - Condition aggravated [Recovering/Resolving]
  - Blood glucose abnormal [Recovering/Resolving]
